FAERS Safety Report 9184560 (Version 1)
Quarter: 2013Q1

REPORT INFORMATION
  Report Type: Spontaneous
  Country: US (occurrence: US)
  Receive Date: 20130322
  Receipt Date: 20130322
  Transmission Date: 20140127
  Serious: Yes (Other)
  Sender: FDA-Public Use
  Company Number: US-PFIZER INC-2013094793

PATIENT
  Age: 48 Year
  Sex: Female
  Weight: 86.17 kg

DRUGS (3)
  1. LYRICA [Suspect]
     Indication: FIBROMYALGIA
     Dosage: 50 MG, 4X/DAY
     Dates: start: 2012
  2. LYRICA [Suspect]
     Dosage: 75 MG, 4X/DAY
     Dates: end: 20130315
  3. JANUMET [Suspect]
     Indication: DIABETES MELLITUS
     Dosage: 50/1000MG, 2X/DAY

REACTIONS (3)
  - Blood glucose increased [Unknown]
  - Back pain [Unknown]
  - Gait disturbance [Unknown]
